FAERS Safety Report 10420178 (Version 1)
Quarter: 2014Q3

REPORT INFORMATION
  Report Type: Report from Study
  Country: US (occurrence: None)
  Receive Date: 20140804
  Receipt Date: 20140804
  Transmission Date: 20150326
  Serious: Yes (Hospitalization)
  Sender: FDA-Public Use
  Company Number: 2013US008715

PATIENT
  Age: 65 Year
  Sex: Male

DRUGS (1)
  1. GLASSIA [Suspect]
     Active Substance: .ALPHA.1-PROTEINASE INHIBITOR HUMAN
     Indication: PRODUCT USED FOR UNKNOWN INDICATION
     Dates: end: 201207

REACTIONS (3)
  - Thrombosis [None]
  - Pulmonary embolism [None]
  - Peripheral embolism [None]

NARRATIVE: CASE EVENT DATE: 201207
